FAERS Safety Report 10191910 (Version 2)
Quarter: 2014Q2

REPORT INFORMATION
  Report Type: Report from Study
  Country: IN (occurrence: IN)
  Receive Date: 20140523
  Receipt Date: 20140606
  Transmission Date: 20141212
  Serious: Yes (Death, Other)
  Sender: FDA-Public Use
  Company Number: IN-PAR PHARMACEUTICAL, INC-2014SCPR009087

PATIENT
  Sex: 0

DRUGS (12)
  1. DEXAMETHASONE [Concomitant]
     Indication: STOMATITIS
     Dosage: 8 MG, BID
     Route: 042
     Dates: start: 20140413, end: 20140414
  2. BLOOD, WHOLE [Concomitant]
     Indication: HAEMOGLOBIN DECREASED
     Dosage: 350 ML, SINGLE
     Dates: start: 20140411, end: 20140411
  3. EVEROLIMUS [Suspect]
     Indication: RENAL CELL CARCINOMA
     Dosage: 10 MG, OD
     Route: 048
     Dates: start: 20140505, end: 20140517
  4. EVEROLIMUS [Suspect]
     Indication: RENAL CELL CARCINOMA
     Dosage: 10 MG, OD
     Route: 048
     Dates: start: 20140421, end: 20140504
  5. EVEROLIMUS [Concomitant]
     Indication: RENAL CELL CARCINOMA
     Dosage: 10 MG, OD
     Route: 048
     Dates: start: 20140306, end: 20140420
  6. TRAMADOL HYDROCHLORIDE [Concomitant]
     Indication: PAIN
     Dosage: 100 MG,
     Route: 048
     Dates: start: 20140322, end: 20140517
  7. TRAMADOL HYDROCHLORIDE [Concomitant]
     Indication: METASTASES TO BONE
  8. GRANISETRON [Concomitant]
     Indication: PROPHYLAXIS OF NAUSEA AND VOMITING
     Dosage: 1 MG, BID
     Route: 048
     Dates: start: 20140322, end: 20140517
  9. RANITIDINE [Concomitant]
     Indication: PROPHYLAXIS
     Dosage: 150 MG, BID
     Route: 048
     Dates: start: 20140322, end: 20140517
  10. RANITIDINE [Concomitant]
     Indication: DYSPEPSIA
  11. BETNESOL                           /00008502/ [Concomitant]
     Indication: STOMATITIS
     Dosage: 3 GTT, TID
     Route: 048
     Dates: start: 20140414, end: 20140415
  12. NORFLOX                            /00668101/ [Concomitant]
     Indication: URINARY TRACT INFECTION
     Dosage: 500 MG, OD
     Route: 048
     Dates: start: 20140416, end: 20140419

REACTIONS (7)
  - Cardio-respiratory arrest [Fatal]
  - Aspiration [Fatal]
  - Death [Fatal]
  - Loss of consciousness [Fatal]
  - Hyponatraemia [Unknown]
  - Urinary tract infection [Recovered/Resolved]
  - Stomatitis [Recovered/Resolved]
